FAERS Safety Report 6871277-8 (Version None)
Quarter: 2010Q3

REPORT INFORMATION
  Report Type: 
  Country: None (occurrence: None)
  Receive Date: 20100723
  Receipt Date: 20100713
  Transmission Date: 20110219
  Serious: Yes (Other)
  Sender: FDA-Public Use
  Company Number: US-SANOFI-AVENTIS-2010SA029713

PATIENT
  Sex: Male

DRUGS (3)
  1. SOLOSTAR [Suspect]
  2. SOLOSTAR [Suspect]
  3. LANTUS [Suspect]

REACTIONS (1)
  - DEVICE MALFUNCTION [None]
